FAERS Safety Report 9799762 (Version 3)
Quarter: 2015Q3

REPORT INFORMATION
  Report Type: Spontaneous
  Country: US (occurrence: US)
  Receive Date: 20140106
  Receipt Date: 20150807
  Transmission Date: 20151125
  Serious: Yes (Hospitalization)
  Sender: FDA-Public Use
  Company Number: US-GILEAD-2010-0034167

PATIENT
  Age: 60 Year
  Sex: Female

DRUGS (1)
  1. LETAIRIS [Suspect]
     Active Substance: AMBRISENTAN
     Indication: PULMONARY ARTERIAL HYPERTENSION
     Route: 048
     Dates: start: 20100615

REACTIONS (4)
  - Dyspnoea [Recovered/Resolved]
  - Influenza [Recovered/Resolved]
  - Chest discomfort [Unknown]
  - Swelling [Unknown]

NARRATIVE: CASE EVENT DATE: 201011
